FAERS Safety Report 11057541 (Version 1)
Quarter: 2015Q2

REPORT INFORMATION
  Report Type: Spontaneous
  Country: US (occurrence: US)
  Receive Date: 20150422
  Receipt Date: 20150422
  Transmission Date: 20150821
  Serious: Yes (Death, Other)
  Sender: FDA-Public Use
  Company Number: PHHY2015US046456

PATIENT
  Age: 65 Year
  Sex: Female

DRUGS (3)
  1. AMIODARONE [Suspect]
     Active Substance: AMIODARONE
     Dosage: 0.5 MG/MIN, TOTAL OF 900 MG OVERNIGHT
     Route: 042
  2. AMIODARONE [Suspect]
     Active Substance: AMIODARONE
     Indication: ATRIAL FIBRILLATION
     Dosage: 150 MG
     Route: 040
  3. AMIODARONE [Suspect]
     Active Substance: AMIODARONE
     Dosage: 200 MG, 3 DOSE
     Route: 048

REACTIONS (4)
  - Liver injury [Fatal]
  - Nausea [Unknown]
  - Multi-organ failure [Fatal]
  - Fungaemia [Fatal]
